FAERS Safety Report 7934969-5 (Version None)
Quarter: 2011Q4

REPORT INFORMATION
  Report Type: 
  Country: None (occurrence: None)
  Receive Date: 20111122
  Receipt Date: 20111109
  Transmission Date: 20120403
  Serious: No
  Sender: FDA-Public Use
  Company Number: US-B.I. PHARMACEUTICALS,INC./RIDGEFIELD-2011-BP-24707BP

PATIENT
  Age: 77 Year
  Sex: Male

DRUGS (3)
  1. TOPROL-XL [Concomitant]
     Indication: CARDIAC DISORDER
  2. PRADAXA [Suspect]
     Indication: ATRIAL FIBRILLATION
     Dosage: 300 MG
     Route: 048
     Dates: start: 20110701, end: 20111025
  3. DIOVAN [Concomitant]
     Indication: CARDIAC DISORDER

REACTIONS (3)
  - FLATULENCE [None]
  - DYSPEPSIA [None]
  - DIARRHOEA [None]
